FAERS Safety Report 4845337-7 (Version None)
Quarter: 2005Q4

REPORT INFORMATION
  Report Type: 
  Country: None (occurrence: None)
  Receive Date: 20051205
  Receipt Date: 20051129
  Transmission Date: 20060501
  Serious: Yes (Other)
  Sender: FDA-Public Use
  Company Number: CH-GLAXOSMITHKLINE-B0402240A

PATIENT
  Age: 31 Year
  Sex: Female

DRUGS (2)
  1. COMBIVIR [Suspect]
     Route: 048
  2. SUSTIVA [Suspect]
     Dosage: 600MG PER DAY
     Route: 048
     Dates: end: 20040128

REACTIONS (2)
  - ABORTION INDUCED [None]
  - DRUG EXPOSURE DURING PREGNANCY [None]
